FAERS Safety Report 5531187-5 (Version None)
Quarter: 2007Q4

REPORT INFORMATION
  Report Type: 
  Country: None (occurrence: None)
  Receive Date: 20071130
  Receipt Date: 20071121
  Transmission Date: 20080405
  Serious: Yes (Other)
  Sender: FDA-Public Use
  Company Number: US-PFIZER INC-2007099817

PATIENT
  Sex: Female
  Weight: 58.181 kg

DRUGS (11)
  1. CHANTIX [Suspect]
     Indication: SMOKING CESSATION THERAPY
     Route: 048
     Dates: start: 20070521, end: 20070618
  2. TOPROL-XL [Concomitant]
  3. CLONIDINE [Concomitant]
  4. LISINOPRIL [Concomitant]
  5. OMACOR [Concomitant]
  6. CRESTOR [Concomitant]
  7. COZAAR [Concomitant]
  8. XANAX [Concomitant]
  9. TRANXENE [Concomitant]
     Indication: ANXIETY
  10. VITAMIN CAP [Concomitant]
  11. ALL OTHER THERAPEUTIC PRODUCTS [Concomitant]

REACTIONS (3)
  - HOSTILITY [None]
  - IRRITABILITY [None]
  - PANIC ATTACK [None]
